FAERS Safety Report 16036263 (Version 1)
Quarter: 2019Q1

REPORT INFORMATION
  Report Type: Spontaneous
  Country: SE (occurrence: SE)
  Receive Date: 20190305
  Receipt Date: 20190305
  Transmission Date: 20190418
  Serious: Yes (Hospitalization)
  Sender: FDA-Public Use
  Company Number: SE-PFIZER INC-2019091075

PATIENT
  Sex: Female

DRUGS (2)
  1. LYRICA [Suspect]
     Active Substance: PREGABALIN
     Dosage: 1200 MG, UNK
     Route: 048
     Dates: start: 20161023, end: 20161023
  2. COCILLANA-ETYFIN [ETHYLMORPHINE HYDROCHLORIDE;GUAREA GUIDONIA;POLYGALA [Suspect]
     Active Substance: ETHYLMORPHINE HYDROCHLORIDE
     Dosage: 330 ML, (ALSO REPORTED AS 2/3 OF 500ML)
     Route: 048
     Dates: start: 20161023, end: 20161023

REACTIONS (5)
  - Nausea [Unknown]
  - Intentional self-injury [Unknown]
  - Headache [Unknown]
  - Fatigue [Unknown]
  - Intentional overdose [Unknown]

NARRATIVE: CASE EVENT DATE: 20161023
